FAERS Safety Report 20451978 (Version 2)
Quarter: 2022Q1

REPORT INFORMATION
  Report Type: Spontaneous
  Country: US (occurrence: US)
  Receive Date: 20220209
  Receipt Date: 20220228
  Transmission Date: 20220424
  Serious: Yes (Death, Hospitalization, Other)
  Sender: FDA-Public Use
  Company Number: US-APOTEX-2022AP003058

PATIENT
  Age: 73 Year
  Sex: Female

DRUGS (1)
  1. NORVASC [Suspect]
     Active Substance: AMLODIPINE BESYLATE
     Indication: Product used for unknown indication
     Dosage: 400 MILLIGRAM (40 TABLETS)
     Route: 048

REACTIONS (5)
  - Intentional overdose [Fatal]
  - Suicide attempt [Fatal]
  - Multiple organ dysfunction syndrome [Fatal]
  - Vasoplegia syndrome [Fatal]
  - Atrioventricular dissociation [Fatal]

NARRATIVE: CASE EVENT DATE: 20210301
